FAERS Safety Report 9688817 (Version 2)
Quarter: 2013Q4

REPORT INFORMATION
  Report Type: Spontaneous
  Country: US (occurrence: None)
  Receive Date: 20131113
  Receipt Date: 20131119
  Transmission Date: 20140711
  Serious: Yes (Death)
  Sender: FDA-Public Use
  Company Number: UTC-040374

PATIENT
  Age: 63 Year
  Sex: Female

DRUGS (2)
  1. REMODULIN [Suspect]
     Indication: PULMONARY ARTERIAL HYPERTENSION
     Dosage: 145.44 UG/KG (0.101 UG/KG, 1 IN 1 MIN) SUBCUTANEOUS
     Route: 058
     Dates: start: 20121218
  2. LETAIRIS [Suspect]
     Indication: PULMONARY HYPERTENSION
     Dosage: 145.44 UG/KG (0.101 UG /KG, 1 IN 1 MIN), SUBCUTANEOUS
     Route: 048
     Dates: start: 20130416

REACTIONS (5)
  - Death [None]
  - Scleroderma [None]
  - Interstitial lung disease [None]
  - Disease progression [None]
  - Pulmonary arterial hypertension [None]
